FAERS Safety Report 5118399-X (Version None)
Quarter: 2006Q3

REPORT INFORMATION
  Report Type: 
  Country: None (occurrence: None)
  Receive Date: 20060926
  Receipt Date: 20060913
  Transmission Date: 20061208
  Serious: Yes (Hospitalization)
  Sender: FDA-Public Use
  Company Number: FR200609002847

PATIENT
  Age: 79 Year
  Sex: Female

DRUGS (8)
  1. FORTEO [Suspect]
     Indication: OSTEOPOROSIS
     Dosage: 20 UG, DAILY (1/D), SUBCUTANEOUS
     Route: 058
     Dates: start: 20060515, end: 20060907
  2. FORTEO [Concomitant]
  3. OSSOPAN (DURAPATITE) [Concomitant]
  4. ACETAMINOPHEN [Concomitant]
  5. LASIX [Concomitant]
  6. VALSARTAN [Concomitant]
  7. MOCLAMINE (MOCLOBEMIDE) [Concomitant]
  8. LOVENOX [Concomitant]

REACTIONS (12)
  - ABDOMINAL STRANGULATED HERNIA [None]
  - DECREASED APPETITE [None]
  - DEPRESSION [None]
  - FLUID RETENTION [None]
  - HIATUS HERNIA [None]
  - HYPERTENSION [None]
  - HYPONATRAEMIA [None]
  - MUSCLE SPASMS [None]
  - NAUSEA [None]
  - SUFFOCATION FEELING [None]
  - VERTIGO [None]
  - WEIGHT DECREASED [None]
